FAERS Safety Report 7150337-0 (Version None)
Quarter: 2010Q4

REPORT INFORMATION
  Report Type: 
  Country: None (occurrence: None)
  Receive Date: 20101123
  Receipt Date: 20101108
  Transmission Date: 20110411
  Serious: Yes (Hospitalization)
  Sender: FDA-Public Use
  Company Number: 2010004890

PATIENT
  Age: 79 Year
  Sex: Female

DRUGS (1)
  1. TARCEVA [Suspect]
     Indication: LUNG NEOPLASM MALIGNANT
     Dosage: (150 MG,QOD),ORAL
     Route: 048
     Dates: start: 20100525

REACTIONS (9)
  - ALOPECIA [None]
  - ASTHENIA [None]
  - CARDIAC FAILURE [None]
  - DECREASED APPETITE [None]
  - DIARRHOEA [None]
  - DYSGEUSIA [None]
  - LENTIGO [None]
  - PNEUMONIA [None]
  - WEIGHT DECREASED [None]
